FAERS Safety Report 18398245 (Version 1)
Quarter: 2020Q4

REPORT INFORMATION
  Report Type: Spontaneous
  Country: US (occurrence: US)
  Receive Date: 20201019
  Receipt Date: 20201019
  Transmission Date: 20210114
  Serious: Yes (Other)
  Sender: FDA-Public Use
  Company Number: US-BAYER-2020-221511

PATIENT
  Age: 89 Year
  Sex: Female

DRUGS (3)
  1. BAYER LOW DOSE [Suspect]
     Active Substance: ASPIRIN
     Dosage: 1 DF, HS (WITH WATER)
     Route: 048
  2. CITRACAL CALCIUM + D SLOW RELEASE 1200 [Concomitant]
     Active Substance: CALCIUM CARBONATE\CALCIUM CITRATE\MAGNESIUM HYDROXIDE\VITAMIN D
  3. BAYER ASPIRIN [Suspect]
     Active Substance: ASPIRIN
     Indication: PAIN
     Dosage: 1 DF (WITH WATER)
     Route: 048

REACTIONS (4)
  - Product prescribing issue [Unknown]
  - Product use complaint [None]
  - Incorrect dose administered [Unknown]
  - Choking [Unknown]
